APPROVED DRUG PRODUCT: AMPICILLIN SODIUM
Active Ingredient: AMPICILLIN SODIUM
Strength: EQ 125MG BASE/VIAL
Dosage Form/Route: INJECTABLE;INJECTION
Application: A061395 | Product #001 | TE Code: AP
Applicant: SANDOZ INC
Approved: Approved Prior to Jan 1, 1982 | RLD: No | RS: Yes | Type: RX